FAERS Safety Report 6090992-X (Version None)
Quarter: 2009Q1

REPORT INFORMATION
  Report Type: 
  Country: None (occurrence: None)
  Receive Date: 20090218
  Receipt Date: 20090218
  Transmission Date: 20090719
  Serious: Yes (Hospitalization)
  Sender: FDA-Public Use
  Company Number: None

PATIENT
  Age: 11 Year
  Sex: Male
  Weight: 39.5 kg

DRUGS (2)
  1. MORPHINE 4MG UNKNOWN [Suspect]
     Indication: GUN SHOT WOUND
     Dosage: 4MG X1 IV X1 DOSE ONLY
     Route: 042
     Dates: start: 20081120, end: 20081120
  2. MORPHINE 4MG UNKNOWN [Suspect]
     Indication: PAIN
     Dosage: 4MG X1 IV X1 DOSE ONLY
     Route: 042
     Dates: start: 20081120, end: 20081120

REACTIONS (9)
  - BRADYCARDIA [None]
  - BRONCHOSPASM [None]
  - EYELID OEDEMA [None]
  - HYPERHIDROSIS [None]
  - HYPOTENSION [None]
  - LOSS OF CONSCIOUSNESS [None]
  - SWOLLEN TONGUE [None]
  - VOMITING [None]
  - WHEEZING [None]
